FAERS Safety Report 9199770 (Version 1)
Quarter: 2013Q1

REPORT INFORMATION
  Report Type: Spontaneous
  Country: US (occurrence: None)
  Receive Date: 20130328
  Receipt Date: 20130328
  Transmission Date: 20140127
  Serious: Yes (Hospitalization)
  Sender: FDA-Public Use
  Company Number: None

PATIENT
  Age: 51 Year
  Sex: Male
  Weight: 130 kg

DRUGS (2)
  1. FENTANYL 300 MCG/ML [Suspect]
     Indication: PAIN
     Dosage: 10-20 ML OS SOLUTION ONCE SQ
     Route: 058
     Dates: start: 20120802, end: 20120802
  2. CLONIDINE 1 900 MCG/ML [Suspect]

REACTIONS (5)
  - Accidental exposure to product [None]
  - Needle issue [None]
  - Lethargy [None]
  - Incorrect dose administered [None]
  - Injection site extravasation [None]
